FAERS Safety Report 9414378 (Version 4)
Quarter: 2014Q2

REPORT INFORMATION
  Report Type: Spontaneous
  Country: US (occurrence: US)
  Receive Date: 20130723
  Receipt Date: 20140610
  Transmission Date: 20141212
  Serious: Yes (Hospitalization)
  Sender: FDA-Public Use
  Company Number: US-GLAXOSMITHKLINE-A1027731A

PATIENT
  Age: 56 Year
  Sex: Female

DRUGS (2)
  1. FLOLAN [Suspect]
     Indication: PULMONARY ARTERIAL HYPERTENSION
     Dosage: 20.5NGKM CONTINUOUS
     Route: 042
     Dates: start: 20010309
  2. COUMADIN [Concomitant]

REACTIONS (9)
  - Catheter site infection [Recovered/Resolved]
  - Central venous catheterisation [Unknown]
  - Catheter site pain [Unknown]
  - Fall [Unknown]
  - Wound infection [Recovering/Resolving]
  - Eye swelling [Recovering/Resolving]
  - Oral herpes [Recovering/Resolving]
  - Lip swelling [Recovering/Resolving]
  - Infusion site erythema [Recovering/Resolving]
